FAERS Safety Report 5227905-6 (Version None)
Quarter: 2007Q1

REPORT INFORMATION
  Report Type: 
  Country: None (occurrence: None)
  Receive Date: 20070202
  Receipt Date: 20060818
  Transmission Date: 20070707
  Serious: Yes (Other)
  Sender: FDA-Public Use
  Company Number: US-PFIZER INC-2006105891

PATIENT
  Sex: Female
  Weight: 88.5 kg

DRUGS (12)
  1. CELEBREX [Suspect]
     Indication: ARTHRITIS
     Route: 065
  2. BEXTRA [Suspect]
     Indication: ARTHRITIS
     Route: 065
  3. GLUCOTROL [Suspect]
     Indication: DIABETES MELLITUS NON-INSULIN-DEPENDENT
     Dosage: TEXT:UNKNOWN-FREQ:UNKNOWN
     Route: 065
  4. OSTEO BI-FLEX [Suspect]
     Indication: ARTHRITIS
     Dosage: TEXT:UNKNOWN-FREQ:UNKNOWN
     Route: 065
  5. GLUCOSAMINE W/CHONDROITIN SULFATES [Suspect]
     Indication: ARTHRITIS
     Dosage: TEXT:UNKNOWN-FREQ:UNKNOWN
     Route: 065
  6. CAPOTEN [Concomitant]
     Route: 065
  7. VITAMIN CAP [Concomitant]
     Route: 065
  8. SYNTHROID [Concomitant]
     Route: 065
  9. AMITRIPTYLINE HCL [Concomitant]
     Route: 065
  10. CALCIUM [Concomitant]
     Route: 065
  11. GENERAL NUTRIENTS [Concomitant]
     Route: 065
  12. VITAMIN B-12 [Concomitant]
     Route: 065

REACTIONS (9)
  - BLOOD GLUCOSE INCREASED [None]
  - BLOOD PRESSURE INCREASED [None]
  - DIABETES MELLITUS INADEQUATE CONTROL [None]
  - DRUG INEFFECTIVE [None]
  - GASTRIC BYPASS [None]
  - INSULIN RESISTANCE [None]
  - NAUSEA [None]
  - NEUROPATHY [None]
  - STOMACH DISCOMFORT [None]
